FAERS Safety Report 6848717-3 (Version None)
Quarter: 2010Q3

REPORT INFORMATION
  Report Type: 
  Country: None (occurrence: None)
  Receive Date: 20100716
  Receipt Date: 20070907
  Transmission Date: 20110219
  Serious: No
  Sender: FDA-Public Use
  Company Number: US-PFIZER INC-2007076191

PATIENT
  Sex: Female
  Weight: 61.363 kg

DRUGS (3)
  1. CHANTIX [Suspect]
     Indication: SMOKING CESSATION THERAPY
     Dates: start: 20070801, end: 20070903
  2. PROTONIX [Concomitant]
  3. PREMARIN [Concomitant]

REACTIONS (3)
  - FEELING ABNORMAL [None]
  - MENTAL IMPAIRMENT [None]
  - SEDATION [None]
